FAERS Safety Report 4908546-4 (Version None)
Quarter: 2006Q1

REPORT INFORMATION
  Report Type: 
  Country: None (occurrence: None)
  Receive Date: 20060210
  Receipt Date: 20050823
  Transmission Date: 20060701
  Serious: No
  Sender: FDA-Public Use
  Company Number: US-GLAXOSMITHKLINE-A0571486A

PATIENT
  Age: 49 Year
  Sex: Female

DRUGS (8)
  1. PAXIL CR [Suspect]
     Indication: DEPRESSION
     Dosage: 75MG PER DAY
     Route: 048
     Dates: start: 20040601, end: 20040701
  2. PAXIL [Suspect]
     Indication: DEPRESSION
     Dosage: 90MG PER DAY
     Route: 048
  3. LAMICTAL [Concomitant]
  4. TOPAMAX [Concomitant]
  5. PRINIVIL [Concomitant]
  6. SINGULAIR [Concomitant]
  7. DITROPAN XL [Concomitant]
  8. ADVAIR DISKUS 100/50 [Concomitant]

REACTIONS (3)
  - DEPRESSION [None]
  - DRUG INEFFECTIVE [None]
  - OVERDOSE [None]
